FAERS Safety Report 5453950-1 (Version None)
Quarter: 2007Q3

REPORT INFORMATION
  Report Type: 
  Country: None (occurrence: None)
  Receive Date: 20070917
  Receipt Date: 20070228
  Transmission Date: 20080115
  Serious: Yes (Other)
  Sender: FDA-Public Use
  Company Number: US-ASTRAZENECA-2006UW03016

PATIENT
  Age: 50 Year
  Sex: Female
  Weight: 89.5 kg

DRUGS (7)
  1. SEROQUEL [Suspect]
     Indication: INSOMNIA
     Dosage: 100MG, 800 MG
     Route: 048
     Dates: start: 20031101
  2. SLIMAGE [Concomitant]
  3. HALDOL [Concomitant]
     Dates: start: 20060301
  4. RISPERDAL [Concomitant]
     Dates: start: 20020101, end: 20040301
  5. GABAPENTIN [Concomitant]
  6. CLONIDINE [Concomitant]
  7. MARIJUANA [Concomitant]
     Dates: start: 20040101

REACTIONS (4)
  - BIPOLAR DISORDER [None]
  - TARDIVE DYSKINESIA [None]
  - TYPE 2 DIABETES MELLITUS [None]
  - WEIGHT INCREASED [None]
